FAERS Safety Report 8556014-3 (Version None)
Quarter: 2012Q3

REPORT INFORMATION
  Report Type: 
  Country: None (occurrence: None)
  Receive Date: 20120719
  Receipt Date: 20120712
  Transmission Date: 20120928
  Serious: Yes (Congenital Anomaly)
  Sender: FDA-Public Use
  Company Number: 2012MA008732

PATIENT
  Sex: Female

DRUGS (5)
  1. CIPROFLOXACIN [Concomitant]
  2. ACETAMINOPHEN [Concomitant]
  3. AMOXICILLIN [Concomitant]
  4. FOLIC ACID [Concomitant]
  5. FLUOXETINE [Suspect]
     Indication: DEPRESSION
     Dosage: 40 MG, QD, TRPL
     Route: 064

REACTIONS (5)
  - CEREBELLAR HYPOPLASIA [None]
  - ARNOLD-CHIARI MALFORMATION [None]
  - HYDROCEPHALUS [None]
  - MATERNAL DRUGS AFFECTING FOETUS [None]
  - SPINA BIFIDA [None]
